FAERS Safety Report 21658642 (Version 1)
Quarter: 2022Q4

REPORT INFORMATION
  Report Type: Spontaneous
  Country: HR (occurrence: None)
  Receive Date: 20221129
  Receipt Date: 20221129
  Transmission Date: 20230113
  Serious: Yes (Other)
  Sender: FDA-Public Use
  Company Number: 2022A383460

PATIENT
  Sex: Male

DRUGS (4)
  1. SEROQUEL [Suspect]
     Active Substance: QUETIAPINE FUMARATE
     Dosage: 1 DF = 1 TABLETA
     Route: 065
     Dates: start: 202210, end: 202210
  2. METHADONE HYDROCHLORIDE [Suspect]
     Active Substance: METHADONE HYDROCHLORIDE
     Route: 065
     Dates: start: 202210, end: 202210
  3. DIAZEPAM [Suspect]
     Active Substance: DIAZEPAM
     Dosage: 1 DF = 1 TABLETA
     Route: 065
     Dates: start: 202210, end: 202210
  4. ZOLPIDEM TARTRATE [Suspect]
     Active Substance: ZOLPIDEM TARTRATE
     Dosage: 1 DF = 1 TABLETA
     Route: 065
     Dates: start: 202210, end: 202210

REACTIONS (4)
  - Drug abuse [Unknown]
  - Tachycardia [Unknown]
  - Sinus tachycardia [Unknown]
  - Somnolence [Unknown]

NARRATIVE: CASE EVENT DATE: 20221001
